FAERS Safety Report 9118634 (Version 1)
Quarter: 2013Q1

REPORT INFORMATION
  Report Type: Spontaneous
  Country: US (occurrence: None)
  Receive Date: 20130130
  Receipt Date: 20130130
  Transmission Date: 20140127
  Serious: Yes (Hospitalization)
  Sender: FDA-Public Use
  Company Number: UTC-028392

PATIENT
  Age: 38 Year
  Sex: Female
  Weight: 57.2 kg

DRUGS (4)
  1. REMODULIN [Suspect]
     Indication: PULMONARY ARTERIAL HYPERTENSION
     Dosage: 156.96 UG/KG (0.109 UG/KG, 1 IN 1 MIN.), SUBCUTANEOUS.
     Route: 058
     Dates: start: 20090616
  2. ADCIRCA (TADALFIL) [Concomitant]
  3. COUMADIN (WARFARIN SODIIUM) [Concomitant]
  4. TRACLEER (BOSENTAN) [Concomitant]

REACTIONS (3)
  - Infusion site infection [None]
  - Infusion site rash [None]
  - Infusion site swelling [None]
